FAERS Safety Report 5467792-4 (Version None)
Quarter: 2007Q3

REPORT INFORMATION
  Report Type: 
  Country: None (occurrence: None)
  Receive Date: 20070926
  Receipt Date: 20070918
  Transmission Date: 20080115
  Serious: Yes (Hospitalization, Other)
  Sender: FDA-Public Use
  Company Number: PHEH2007US05380

PATIENT
  Age: 61 Year
  Sex: Female

DRUGS (1)
  1. ZELNORM [Suspect]
     Dates: start: 20070312, end: 20070315

REACTIONS (10)
  - AGEUSIA [None]
  - ANOSMIA [None]
  - CEREBROVASCULAR ACCIDENT [None]
  - EYE SWELLING [None]
  - FLUID RETENTION [None]
  - NASAL DISCOMFORT [None]
  - OEDEMA PERIPHERAL [None]
  - SWOLLEN TONGUE [None]
  - TONGUE DISORDER [None]
  - WEIGHT INCREASED [None]
